FAERS Safety Report 8174567-4 (Version None)
Quarter: 2012Q1

REPORT INFORMATION
  Report Type: 
  Country: None (occurrence: None)
  Receive Date: 20120229
  Receipt Date: 20120227
  Transmission Date: 20120608
  Serious: Yes (Other)
  Sender: FDA-Public Use
  Company Number: DE-TEVA-323353GER

PATIENT
  Age: 10 Year
  Sex: Male

DRUGS (7)
  1. PREDNISONE [Suspect]
     Indication: ACUTE LYMPHOCYTIC LEUKAEMIA
     Route: 065
  2. ASPARAGINASE [Suspect]
     Indication: ACUTE LYMPHOCYTIC LEUKAEMIA
     Route: 065
  3. COLISTIN SULFATE [Concomitant]
     Indication: PSEUDOMONAS INFECTION
     Route: 055
  4. DEXAMETHASONE [Suspect]
     Indication: ACUTE LYMPHOCYTIC LEUKAEMIA
     Route: 065
  5. CEFTAZIDIME [Concomitant]
     Indication: PSEUDOMONAS INFECTION
     Route: 042
  6. TOBRAMYCIN [Concomitant]
     Indication: PSEUDOMONAS INFECTION
     Route: 042
  7. METHOTREXATE [Concomitant]
     Indication: ACUTE LYMPHOCYTIC LEUKAEMIA
     Route: 065

REACTIONS (3)
  - HEPATOTOXICITY [None]
  - SUPERIOR SAGITTAL SINUS THROMBOSIS [None]
  - OSTEOPENIA [None]
